FAERS Safety Report 7500466-4 (Version None)
Quarter: 2011Q2

REPORT INFORMATION
  Report Type: 
  Country: None (occurrence: None)
  Receive Date: 20110524
  Receipt Date: 20110412
  Transmission Date: 20111010
  Serious: No
  Sender: FDA-Public Use
  Company Number: US-BRISTOL-MYERS SQUIBB COMPANY-15668890

PATIENT
  Age: 65 Year
  Sex: Female

DRUGS (5)
  1. ONGLYZA [Suspect]
  2. LANTUS [Suspect]
     Dosage: 1DF:26 UNITS
  3. LASIX [Suspect]
  4. NOVOLOG [Suspect]
  5. LISINOPRIL [Suspect]

REACTIONS (3)
  - HYPERHIDROSIS [None]
  - MUSCULAR WEAKNESS [None]
  - WEIGHT FLUCTUATION [None]
